FAERS Safety Report 4887448-6 (Version None)
Quarter: 2006Q1

REPORT INFORMATION
  Report Type: 
  Country: None (occurrence: None)
  Receive Date: 20060118
  Receipt Date: 20051128
  Transmission Date: 20060701
  Serious: Yes (Hospitalization, Disabling)
  Sender: FDA-Public Use
  Company Number: EWC050544115

PATIENT
  Age: 67 Year
  Sex: Female
  Weight: 57 kg

DRUGS (10)
  1. FORTEO [Suspect]
     Indication: OSTEOPOROSIS
     Dosage: 20 UG, DAILY (1/D), SUBCUTANEOUS
     Route: 058
     Dates: start: 20041005, end: 20050509
  2. BRUFEN (IBUPROFEN) [Concomitant]
  3. FISH OIL (FISH OIL) [Concomitant]
  4. CENTYL (BENDROFLUMETHIAZIDE) [Concomitant]
  5. REMICADE [Concomitant]
  6. METHOTREXAT (METHOTREXATE              /00113801) [Concomitant]
  7. TREVINA [Concomitant]
  8. VITAMIN B STRONG [Concomitant]
  9. FOLIC ACID [Concomitant]
  10. FORTEO PEN, 250MCG/ML (3ML) (FORTEO PEN 250MCG/ML (3ML)) PEN, DISPOSAB [Concomitant]

REACTIONS (4)
  - CEREBROVASCULAR ACCIDENT [None]
  - DRUG INTERACTION [None]
  - INTRACRANIAL VENOUS SINUS THROMBOSIS [None]
  - LACUNAR INFARCTION [None]
